FAERS Safety Report 7881333-3 (Version None)
Quarter: 2011Q4

REPORT INFORMATION
  Report Type: 
  Country: None (occurrence: None)
  Receive Date: 20111101
  Receipt Date: 20110525
  Transmission Date: 20120403
  Serious: No
  Sender: FDA-Public Use
  Company Number: US-AMGEN-USASP2011027248

PATIENT
  Sex: Male
  Weight: 90.703 kg

DRUGS (6)
  1. ENBREL [Suspect]
     Indication: PRODUCT USED FOR UNKNOWN INDICATION
     Dosage: 50 MG, QWK
  2. OMEPRAZOLE [Concomitant]
     Dosage: 10 MG, UNK
     Route: 048
  3. INDOCIN                            /00003801/ [Concomitant]
     Dosage: 75 MG, UNK
     Route: 048
  4. ARAVA [Concomitant]
     Dosage: 10 MG, UNK
     Route: 048
  5. TOPROL-XL [Concomitant]
     Dosage: 25 MG, UNK
     Route: 048
  6. LIPITOR [Concomitant]
     Dosage: 10 MG, UNK
     Route: 048

REACTIONS (1)
  - RASH [None]
